FAERS Safety Report 4807125-7 (Version None)
Quarter: 2005Q4

REPORT INFORMATION
  Report Type: 
  Country: None (occurrence: None)
  Receive Date: 20051024
  Receipt Date: 20051013
  Transmission Date: 20060501
  Serious: Yes (Hospitalization)
  Sender: FDA-Public Use
  Company Number: FR-GLAXOSMITHKLINE-B0397927A

PATIENT
  Age: 47 Year
  Sex: Female

DRUGS (1)
  1. NARAMIG [Suspect]
     Route: 048

REACTIONS (1)
  - ANGINA UNSTABLE [None]
